FAERS Safety Report 19757164 (Version 1)
Quarter: 2021Q3

REPORT INFORMATION
  Report Type: Spontaneous
  Country: AR (occurrence: AR)
  Receive Date: 20210828
  Receipt Date: 20210828
  Transmission Date: 20211014
  Serious: Yes (Death, Hospitalization, Other)
  Sender: FDA-Public Use
  Company Number: AR-UNITED THERAPEUTICS-UNT-2021-016835

PATIENT
  Sex: Female

DRUGS (1)
  1. REMODULIN [Suspect]
     Active Substance: TREPROSTINIL
     Indication: PULMONARY HYPERTENSION
     Dosage: UNK, CONTINUING
     Route: 058
     Dates: start: 202011, end: 20210723

REACTIONS (5)
  - Right ventricular failure [Fatal]
  - Sensory disturbance [Unknown]
  - Haemorrhagic stroke [Fatal]
  - Congestive hepatopathy [Fatal]
  - International normalised ratio abnormal [Unknown]
